FAERS Safety Report 6183396-2 (Version None)
Quarter: 2009Q2

REPORT INFORMATION
  Report Type: 
  Country: None (occurrence: None)
  Receive Date: 20090506
  Receipt Date: 20090429
  Transmission Date: 20091009
  Serious: Yes (Other)
  Sender: FDA-Public Use
  Company Number: 193377USA

PATIENT
  Age: 67 Year
  Sex: Male
  Weight: 77.1115 kg

DRUGS (2)
  1. CYCLOBENZAPRINE HCL [Suspect]
     Indication: PAIN IN EXTREMITY
     Dosage: 1/2 TABLET BY MOUTH THREE TIMES DAILY, ORAL
     Route: 048
     Dates: start: 20090423, end: 20090426
  2. CIPRO [Suspect]
     Indication: PROSTATITIS
     Dosage: 2 IN 1 D, ORAL
     Route: 048
     Dates: start: 20090424

REACTIONS (1)
  - DYSURIA [None]
